FAERS Safety Report 6160762-2 (Version None)
Quarter: 2009Q2

REPORT INFORMATION
  Report Type: 
  Country: None (occurrence: None)
  Receive Date: 20090420
  Receipt Date: 20090415
  Transmission Date: 20091009
  Serious: Yes (Other)
  Sender: FDA-Public Use
  Company Number: CA-ALLERGAN-0900295US

PATIENT
  Sex: Female

DRUGS (2)
  1. BOTOX [Suspect]
     Indication: SKIN WRINKLING
     Dosage: 30 UNITS, SINGLE
     Route: 030
     Dates: start: 20081101, end: 20081101
  2. IBUPROFEN [Concomitant]
     Indication: ARTHRALGIA
     Dosage: ALMOST DAILY FOR SEVERAL YEARS

REACTIONS (7)
  - EYELID PTOSIS [None]
  - HEAD DEFORMITY [None]
  - INJECTION SITE HAEMATOMA [None]
  - INJECTION SITE HAEMORRHAGE [None]
  - INTENTIONAL DRUG MISUSE [None]
  - SPEECH DISORDER [None]
  - SWELLING FACE [None]
